FAERS Safety Report 7629809-8 (Version None)
Quarter: 2011Q3

REPORT INFORMATION
  Report Type: 
  Country: None (occurrence: None)
  Receive Date: 20110722
  Receipt Date: 20110712
  Transmission Date: 20111222
  Serious: Yes (Hospitalization)
  Sender: FDA-Public Use
  Company Number: JP-GENZYME-THYM-1002152

PATIENT
  Sex: Male
  Weight: 50 kg

DRUGS (12)
  1. FAMOTIDINE [Concomitant]
     Indication: GASTRITIS PROPHYLAXIS
     Dosage: UNK
     Dates: start: 20101025
  2. PREDNISOLONE [Concomitant]
     Indication: APLASTIC ANAEMIA
     Dosage: UNK
     Dates: start: 20101025
  3. AZELNIDIPINE [Concomitant]
     Indication: HYPERTENSION
     Dosage: UNK
     Dates: start: 20101025
  4. ETIZOLAM [Concomitant]
     Indication: PROPHYLAXIS
     Dosage: UNK
     Dates: start: 20101025
  5. BROTIZOLAM [Concomitant]
     Indication: PROPHYLAXIS
     Dosage: UNK
     Dates: start: 20101025
  6. SENNA LEAF [Concomitant]
     Indication: CONSTIPATION PROPHYLAXIS
     Dosage: UNK
     Dates: start: 20101025
  7. MAGNESIUM OXIDE [Concomitant]
     Indication: CONSTIPATION PROPHYLAXIS
     Dosage: UNK
     Dates: start: 20101025
  8. LEVOFLOXACIN [Concomitant]
     Indication: INFECTION PROPHYLAXIS
     Dosage: UNK
     Dates: start: 20101025
  9. THYMOGLOBULIN [Suspect]
     Indication: APLASTIC ANAEMIA
     Dosage: 125 MG, QD
     Route: 042
     Dates: start: 20101025, end: 20101029
  10. CYCLOSPORINE [Concomitant]
     Indication: APLASTIC ANAEMIA
     Dosage: UNK
     Dates: start: 20101025
  11. OLMESARTAN MEDOXOMIL [Concomitant]
     Indication: HYPERTENSION
     Dosage: UNK
     Dates: start: 20101025
  12. ITRACONAZOLE [Concomitant]
     Indication: INFECTION PROPHYLAXIS
     Dosage: UNK
     Dates: start: 20101025

REACTIONS (4)
  - SCIATICA [None]
  - HERPES ZOSTER [None]
  - CARDIAC FAILURE CONGESTIVE [None]
  - ENTEROCOCCAL SEPSIS [None]
